FAERS Safety Report 11826656 (Version 1)
Quarter: 2015Q4

REPORT INFORMATION
  Report Type: Spontaneous
  Country: CA (occurrence: CA)
  Receive Date: 20151211
  Receipt Date: 20151211
  Transmission Date: 20160305
  Serious: Yes (Other)
  Sender: FDA-Public Use
  Company Number: CA-BAYER-200310024BCA

PATIENT
  Age: 49 Year
  Sex: Male

DRUGS (4)
  1. ROCEPHIN [Concomitant]
     Active Substance: CEFTRIAXONE SODIUM
     Indication: GASTROENTERITIS
     Dosage: 2 G (DAILY DOSE), QD, INTRAVENOUS
     Route: 042
  2. CIPRO [Suspect]
     Active Substance: CIPROFLOXACIN HYDROCHLORIDE
     Indication: GASTROENTERITIS
     Dosage: AS USED DOSE: UNK
     Route: 042
     Dates: start: 20020613, end: 20020616
  3. ATENOLOL. [Concomitant]
     Active Substance: ATENOLOL
     Indication: UNEVALUABLE EVENT
     Dosage: 50 MG (DAILY DOSE), QD, ORAL
     Route: 048
  4. CIPRO [Suspect]
     Active Substance: CIPROFLOXACIN HYDROCHLORIDE
     Indication: GASTROENTERITIS
     Dosage: 1000 MG (DAILY DOSE), , ORAL
     Route: 048
     Dates: start: 20020613, end: 20020620

REACTIONS (6)
  - Pruritus generalised [Recovered/Resolved]
  - Blindness [Recovered/Resolved]
  - Joint swelling [Recovered/Resolved]
  - Visual acuity reduced [Recovered/Resolved]
  - Hemianopia [Not Recovered/Not Resolved]
  - Visual field defect [Not Recovered/Not Resolved]

NARRATIVE: CASE EVENT DATE: 200206
